FAERS Safety Report 4514527-5 (Version None)
Quarter: 2004Q4

REPORT INFORMATION
  Report Type: 
  Country: None (occurrence: None)
  Receive Date: 20041126
  Receipt Date: 20041118
  Transmission Date: 20050328
  Serious: Yes (Life-Threatening, Hospitalization)
  Sender: FDA-Public Use
  Company Number: STA-AE-04-MTX-584

PATIENT
  Age: 79 Year
  Sex: Female

DRUGS (9)
  1. RHEUMATREX [Suspect]
     Indication: RHEUMATOID ARTHRITIS
     Dosage: 4 MG 1X PER 1 WK, ORAL
     Route: 048
     Dates: start: 19991201, end: 20040916
  2. LOXONIN (LOXOPROFEN SODIUM) [Concomitant]
  3. NIVADIL (NILVADIPINE) [Concomitant]
  4. GASTER (FAMOTIDINE) [Concomitant]
  5. GASLON (IRSOGLADINE MALEATE) [Concomitant]
  6. RIDAURA [Concomitant]
  7. SELBEX (TEPRENONE) [Concomitant]
  8. PREDNISOLONE [Concomitant]
  9. BAYASPIRINA (ACETYLSALICYLIC ACID) [Concomitant]

REACTIONS (4)
  - ORAL MUCOSAL DISORDER [None]
  - ORAL PAIN [None]
  - PANCYTOPENIA [None]
  - PYREXIA [None]
